FAERS Safety Report 13422347 (Version 1)
Quarter: 2017Q2

REPORT INFORMATION
  Report Type: Spontaneous
  Country: US (occurrence: US)
  Receive Date: 20170408
  Receipt Date: 20170408
  Transmission Date: 20170830
  Serious: Yes (Other)
  Sender: FDA-Public Use
  Company Number: None

PATIENT
  Age: 55 Year
  Sex: Male
  Weight: 69.75 kg

DRUGS (2)
  1. NAPROXEN 500MG [Suspect]
     Active Substance: NAPROXEN
     Indication: ARTHRALGIA
     Dosage: ?          QUANTITY:1 TABLET(S);?
     Route: 048
     Dates: start: 20170331, end: 20170331
  2. MEGA RED JOINT CARE [Concomitant]

REACTIONS (3)
  - Abdominal distension [None]
  - Mucous stools [None]
  - Abdominal discomfort [None]

NARRATIVE: CASE EVENT DATE: 20170407
